FAERS Safety Report 25786723 (Version 1)
Quarter: 2025Q3

REPORT INFORMATION
  Report Type: Spontaneous
  Country: US (occurrence: None)
  Receive Date: 20250909
  Receipt Date: 20250909
  Transmission Date: 20251020
  Serious: Yes (Disabling)
  Sender: FDA-CTU
  Company Number: None

PATIENT
  Age: 56 Year
  Sex: Female
  Weight: 92.25 kg

DRUGS (1)
  1. GABAPENTIN [Suspect]
     Active Substance: GABAPENTIN
     Indication: Procedural pain

REACTIONS (9)
  - Sleep terror [None]
  - Nightmare [None]
  - Muscle disorder [None]
  - Tooth loss [None]
  - Vision blurred [None]
  - Confusional state [None]
  - Dizziness [None]
  - Cardiac disorder [None]
  - Gait disturbance [None]

NARRATIVE: CASE EVENT DATE: 20190101
